FAERS Safety Report 6308197-3 (Version None)
Quarter: 2009Q3

REPORT INFORMATION
  Report Type: 
  Country: None (occurrence: None)
  Receive Date: 20090813
  Receipt Date: 20090803
  Transmission Date: 20100115
  Serious: Yes (Death)
  Sender: FDA-Public Use
  Company Number: JP-PFIZER INC-2009250982

PATIENT

DRUGS (1)
  1. HALCION [Suspect]
     Route: 048

REACTIONS (2)
  - OVERDOSE [None]
  - VICTIM OF HOMICIDE [None]
